FAERS Safety Report 18206840 (Version 1)
Quarter: 2020Q3

REPORT INFORMATION
  Report Type: Spontaneous
  Country: FR (occurrence: FR)
  Receive Date: 20200828
  Receipt Date: 20200828
  Transmission Date: 20201103
  Serious: Yes (Hospitalization)
  Sender: FDA-Public Use
  Company Number: FR-ACCORD-197493

PATIENT
  Age: 83 Year
  Sex: Male
  Weight: 64 kg

DRUGS (1)
  1. METHOTREXATE. [Suspect]
     Active Substance: METHOTREXATE
     Indication: DERMATITIS ATOPIC
     Route: 048
     Dates: start: 20200124, end: 20200627

REACTIONS (3)
  - Off label use [Unknown]
  - Endocarditis [Recovering/Resolving]
  - Bacteraemia [Recovered/Resolved]

NARRATIVE: CASE EVENT DATE: 20200626
